FAERS Safety Report 11239935 (Version 1)
Quarter: 2015Q3

REPORT INFORMATION
  Report Type: Spontaneous
  Country: US (occurrence: US)
  Receive Date: 20150706
  Receipt Date: 20150706
  Transmission Date: 20151125
  Serious: No
  Sender: FDA-Public Use
  Company Number: US-009507513-1507USA000282

PATIENT
  Sex: Male

DRUGS (2)
  1. INVANZ [Suspect]
     Active Substance: ERTAPENEM SODIUM
     Indication: URINARY TRACT INFECTION
     Dosage: 1 G, ONCE A DAY (QD)
     Dates: end: 2015
  2. CARBIDOPA. [Concomitant]
     Active Substance: CARBIDOPA

REACTIONS (3)
  - Drug ineffective [Unknown]
  - Myoclonus [Unknown]
  - Confusional state [Unknown]

NARRATIVE: CASE EVENT DATE: 201505
